FAERS Safety Report 17813174 (Version 3)
Quarter: 2020Q2

REPORT INFORMATION
  Report Type: Spontaneous
  Country: RO (occurrence: RO)
  Receive Date: 20200521
  Receipt Date: 20200603
  Transmission Date: 20200714
  Serious: Yes (Hospitalization, Other)
  Sender: FDA-Public Use
  Company Number: RO-PFIZER INC-2020198848

PATIENT
  Age: 54 Year
  Sex: Female

DRUGS (1)
  1. INFLIXIMAB HOSPIRA [Suspect]
     Active Substance: INFLIXIMAB
     Indication: PSORIATIC ARTHROPATHY
     Dosage: UNK

REACTIONS (4)
  - Odynophagia [Unknown]
  - Pyrexia [Unknown]
  - Tuberculosis [Recovered/Resolved]
  - Tonsillitis [Unknown]
